FAERS Safety Report 24079288 (Version 2)
Quarter: 2024Q3

REPORT INFORMATION
  Report Type: Spontaneous
  Country: US (occurrence: US)
  Receive Date: 20240711
  Receipt Date: 20240731
  Transmission Date: 20241017
  Serious: No
  Sender: SANOFI AVENTIS
  Company Number: US-SA-SAC20240705000629

PATIENT
  Age: 61 Year
  Sex: Female

DRUGS (18)
  1. DUPIXENT [Suspect]
     Active Substance: DUPILUMAB
     Indication: Eczema
     Dosage: 300 MG, QOW
     Route: 058
     Dates: start: 202404
  2. ASPIRIN [Concomitant]
     Active Substance: ASPIRIN
  3. TRIAMCINOLONE [Concomitant]
     Active Substance: TRIAMCINOLONE
  4. CLOBETASOL [Concomitant]
     Active Substance: CLOBETASOL
  5. TACROLIMUS [Concomitant]
     Active Substance: TACROLIMUS
  6. DESONIDE [Concomitant]
     Active Substance: DESONIDE
  7. MOMETASONE FUROATE [Concomitant]
     Active Substance: MOMETASONE FUROATE
  8. HYDROXYCHLOROQUINE SULFATE [Concomitant]
     Active Substance: HYDROXYCHLOROQUINE SULFATE
     Dosage: 200 MG, QD
  9. METHOTREXATE [Concomitant]
     Active Substance: METHOTREXATE
  10. FOLIC ACID [Concomitant]
     Active Substance: FOLIC ACID
  11. MONTELUKAST [Concomitant]
     Active Substance: MONTELUKAST SODIUM
     Dosage: 10 MG, QD
  12. LISINOPRIL [Concomitant]
     Active Substance: LISINOPRIL
     Dosage: 10 MG, QD
  13. ROSUVASTATIN [Concomitant]
     Active Substance: ROSUVASTATIN\ROSUVASTATIN CALCIUM
     Dosage: 10 MG, QD
  14. VALACYCLOVIR HYDROCHLORIDE [Concomitant]
     Active Substance: VALACYCLOVIR HYDROCHLORIDE
     Dosage: UNK, QD
  15. OLOPATADINE [Concomitant]
     Active Substance: OLOPATADINE
     Dosage: 1 DF, BID
  16. ALBUTEROL [Concomitant]
     Active Substance: ALBUTEROL
     Dosage: 2 DF,Q4H
  17. INFLUENZA VIRUS VACCINE [Concomitant]
     Active Substance: INFLUENZA VIRUS VACCINE
     Indication: Immunisation
  18. COVID-19 VACCINE [Concomitant]
     Indication: Immunisation

REACTIONS (5)
  - Eczema [Not Recovered/Not Resolved]
  - Rash macular [Not Recovered/Not Resolved]
  - Rash pruritic [Not Recovered/Not Resolved]
  - Rash [Not Recovered/Not Resolved]
  - Incorrect dose administered [Unknown]

NARRATIVE: CASE EVENT DATE: 20240401
